FAERS Safety Report 16139850 (Version 1)
Quarter: 2019Q2

REPORT INFORMATION
  Report Type: Spontaneous
  Country: SE (occurrence: SE)
  Receive Date: 20190401
  Receipt Date: 20190401
  Transmission Date: 20190711
  Serious: Yes (Other)
  Sender: FDA-Public Use
  Company Number: SE-BAYER-2019-055477

PATIENT
  Age: 30 Year
  Sex: Female
  Weight: 70 kg

DRUGS (1)
  1. MIRENA [Suspect]
     Active Substance: LEVONORGESTREL
     Indication: OVARIAN CYST
     Dosage: 20 MCG/24HR, CONT
     Route: 015

REACTIONS (4)
  - Weight increased [Recovering/Resolving]
  - Depression [Recovering/Resolving]
  - Pollakiuria [Recovering/Resolving]
  - Hunger [Recovering/Resolving]

NARRATIVE: CASE EVENT DATE: 2017
